FAERS Safety Report 8045385-2 (Version None)
Quarter: 2012Q1

REPORT INFORMATION
  Report Type: 
  Country: None (occurrence: None)
  Receive Date: 20120113
  Receipt Date: 20120106
  Transmission Date: 20120608
  Serious: Yes (Hospitalization)
  Sender: FDA-Public Use
  Company Number: FR-PFIZER INC-2012004065

PATIENT
  Age: 43 Year
  Sex: Male

DRUGS (4)
  1. PIPERACILLIN AND TAZOBACTAM [Suspect]
     Dosage: 4 G, 3X/DAY
     Route: 042
     Dates: start: 20110406, end: 20110504
  2. TIORFAN [Concomitant]
     Dosage: 100 MG, 3X/DAY
     Route: 048
     Dates: start: 20110414
  3. VANCOMYCIN [Suspect]
     Dosage: 1 G, 2X/DAY
     Dates: start: 20110412, end: 20110504
  4. FLAGYL [Concomitant]
     Dosage: 500 MG, 3X/DAY
     Route: 048
     Dates: start: 20110411, end: 20110421

REACTIONS (2)
  - DRUG RASH WITH EOSINOPHILIA AND SYSTEMIC SYMPTOMS [None]
  - SKIN TEST NEGATIVE [None]
